FAERS Safety Report 8604375-9 (Version None)
Quarter: 2012Q3

REPORT INFORMATION
  Report Type: 
  Country: None (occurrence: None)
  Receive Date: 20120820
  Receipt Date: 20120809
  Transmission Date: 20120928
  Serious: Yes (Other)
  Sender: FDA-Public Use
  Company Number: US-BAYER-2012-082136

PATIENT
  Age: 33 Year
  Sex: Female
  Weight: 84.354 kg

DRUGS (5)
  1. DILTIAZEM HCL [Concomitant]
     Dosage: 240 MG, DAILY
     Route: 048
  2. CARTIA XT [Concomitant]
     Dosage: 240 MG,
     Route: 048
  3. AZITHROMYCIN [Concomitant]
     Dosage: Z-PAK
     Route: 048
  4. YAZ [Suspect]
  5. DROSPIRENONE AND ETHINYL ESTRADIOL [Suspect]

REACTIONS (1)
  - THROMBOPHLEBITIS SUPERFICIAL [None]
